FAERS Safety Report 24074796 (Version 1)
Quarter: 2024Q3

REPORT INFORMATION
  Report Type: Spontaneous
  Country: FR (occurrence: None)
  Receive Date: 20240710
  Receipt Date: 20240710
  Transmission Date: 20241017
  Serious: Yes (Death, Other)
  Sender: ASTRAZENECA
  Company Number: 2024A157470

PATIENT
  Age: 68 Year
  Sex: Male
  Weight: 70 kg

DRUGS (1)
  1. DURVALUMAB [Suspect]
     Active Substance: DURVALUMAB
     Indication: Non-small cell lung cancer
     Dates: start: 20190317, end: 20190606

REACTIONS (5)
  - Malignant neoplasm progression [Fatal]
  - Thrombocytopenia [Unknown]
  - Eastern Cooperative Oncology Group performance status worsened [Unknown]
  - Anaemia [Unknown]
  - Neutropenia [Unknown]
